FAERS Safety Report 20837314 (Version 1)
Quarter: 2022Q2

REPORT INFORMATION
  Report Type: Spontaneous
  Country: ZA (occurrence: ZA)
  Receive Date: 20220517
  Receipt Date: 20220517
  Transmission Date: 20220720
  Serious: Yes (Other)
  Sender: FDA-Public Use
  Company Number: ZA-NOVARTISPH-NVSC2022ZA111951

PATIENT
  Sex: Female

DRUGS (2)
  1. ACLASTA [Suspect]
     Active Substance: ZOLEDRONIC ACID
     Indication: Osteoporosis
     Dosage: UNK, ONCE/SINGLE (ANUALLY)
     Route: 041
     Dates: start: 2018
  2. ACLASTA [Suspect]
     Active Substance: ZOLEDRONIC ACID
     Dosage: UNK, ONCE/SINGLE (ANUALLY)
     Route: 041
     Dates: start: 2021

REACTIONS (2)
  - Deafness [Unknown]
  - Drug intolerance [Unknown]
